FAERS Safety Report 5114209-5 (Version None)
Quarter: 2006Q3

REPORT INFORMATION
  Report Type: 
  Country: None (occurrence: None)
  Receive Date: 20060925
  Receipt Date: 20060824
  Transmission Date: 20061208
  Serious: Yes (Death, Life-Threatening, Hospitalization)
  Sender: FDA-Public Use
  Company Number: FR-SANOFI-SYNTHELABO-F01200601880

PATIENT
  Sex: Male
  Weight: 55 kg

DRUGS (11)
  1. XELODA [Suspect]
     Dosage: 1000 MG TWICE DAILY FOR 2 WEEKS, Q3W
     Route: 048
     Dates: start: 20060511, end: 20060524
  2. OXALIPLATIN [Suspect]
     Indication: RECTAL CANCER METASTATIC
     Route: 042
     Dates: start: 20060511, end: 20060511
  3. CACIT D3 [Concomitant]
  4. CLAMOXYL [Concomitant]
  5. RIVOTRIL [Concomitant]
  6. SKENAN [Concomitant]
  7. SKENAN [Concomitant]
  8. INNOHEP [Concomitant]
  9. DEROXAT [Concomitant]
  10. INIPOMP [Concomitant]
  11. BACTRIM [Concomitant]

REACTIONS (14)
  - CEREBRAL ATROPHY [None]
  - CULTURE URINE POSITIVE [None]
  - DECUBITUS ULCER [None]
  - ENTEROCOCCAL INFECTION [None]
  - GENERAL PHYSICAL HEALTH DETERIORATION [None]
  - HAEMATOMA [None]
  - HEART RATE INCREASED [None]
  - HEMIPARESIS [None]
  - HYPOTENSION [None]
  - INFLAMMATION [None]
  - NEUTROPENIA [None]
  - OXYGEN SATURATION DECREASED [None]
  - PNEUMONIA ESCHERICHIA [None]
  - SEPSIS [None]
